FAERS Safety Report 23635075 (Version 1)
Quarter: 2024Q1

REPORT INFORMATION
  Report Type: Spontaneous
  Country: US (occurrence: US)
  Receive Date: 20240315
  Receipt Date: 20240315
  Transmission Date: 20240410
  Serious: No
  Sender: FDA-Public Use
  Company Number: US-BIOGEN-2019BI00739050

PATIENT
  Age: 24 Year
  Sex: Female

DRUGS (6)
  1. TECFIDERA [Suspect]
     Active Substance: DIMETHYL FUMARATE
     Indication: Multiple sclerosis
     Dosage: STARTING DOSE
     Route: 050
     Dates: start: 20190430, end: 20190508
  2. TECFIDERA [Suspect]
     Active Substance: DIMETHYL FUMARATE
     Dosage: MAINTENANCE DOSE
     Route: 050
     Dates: start: 20190509, end: 20210113
  3. PAROXETINE HYDROCHLORIDE [Concomitant]
     Active Substance: PAROXETINE HYDROCHLORIDE\PAROXETINE HYDROCHLORIDE ANHYDROUS
     Route: 050
  4. D3 DOTS [Concomitant]
     Route: 050
  5. IBUPROFEN [Concomitant]
     Active Substance: IBUPROFEN
     Route: 050
  6. TYLENOL [Concomitant]
     Active Substance: ACETAMINOPHEN
     Route: 050

REACTIONS (14)
  - Treatment failure [Unknown]
  - Product dose omission issue [Unknown]
  - Accidental overdose [Recovered/Resolved]
  - Gastrointestinal disorder [Not Recovered/Not Resolved]
  - Sunburn [Not Recovered/Not Resolved]
  - Constipation [Unknown]
  - Multiple sclerosis [Unknown]
  - Cough [Recovered/Resolved]
  - Pruritus [Unknown]
  - Flushing [Unknown]
  - Rash [Unknown]
  - Diarrhoea [Unknown]
  - Feeling hot [Unknown]
  - Abdominal pain upper [Recovered/Resolved]

NARRATIVE: CASE EVENT DATE: 20190502
